FAERS Safety Report 7710070-0 (Version None)
Quarter: 2011Q3

REPORT INFORMATION
  Report Type: 
  Country: None (occurrence: None)
  Receive Date: 20110825
  Receipt Date: 20110822
  Transmission Date: 20111222
  Serious: Yes (Death)
  Sender: FDA-Public Use
  Company Number: PHHY2011BR39504

PATIENT
  Sex: Male

DRUGS (2)
  1. DIOVAN HCT [Suspect]
     Indication: BLOOD PRESSURE ABNORMAL
     Dosage: 1 DF, ONCE DAILY (320 MG VALS AND 12.5 MG HYDR)
     Route: 048
  2. VALSARTAN [Concomitant]
     Indication: CARDIAC DISORDER
     Dosage: BID
     Route: 048

REACTIONS (1)
  - DEATH [None]
